FAERS Safety Report 15197418 (Version 1)
Quarter: 2018Q3

REPORT INFORMATION
  Report Type: Spontaneous
  Country: US (occurrence: US)
  Receive Date: 20180725
  Receipt Date: 20180725
  Transmission Date: 20181010
  Serious: No
  Sender: FDA-Public Use
  Company Number: US-ABBVIE-18P-163-2223786-00

PATIENT
  Sex: Female

DRUGS (4)
  1. SYNTHROID [Suspect]
     Active Substance: LEVOTHYROXINE SODIUM
     Dosage: 4 TIMES A WEEK ALTERNATING EVERY OTHER DAY WITH 75MCG THREE TIMES A WEEK
     Route: 048
  2. SYNTHROID [Suspect]
     Active Substance: LEVOTHYROXINE SODIUM
     Indication: HYPOTHYROIDISM
     Dosage: 4 DAYS PER WEEK ALTERNATING EVERY OTHER DAY WITH 88MCG THREE TIMES A WEEK
     Route: 048
     Dates: start: 201703
  3. SYNTHROID [Suspect]
     Active Substance: LEVOTHYROXINE SODIUM
     Dosage: 3 DAYS PER WEEK ALTERNATING EVERY OTHER DAY WITH 75 MCG FOUR TIMES A WEEK
     Route: 048
     Dates: start: 201703
  4. SYNTHROID [Suspect]
     Active Substance: LEVOTHYROXINE SODIUM
     Dosage: 3 TIMES A WEEK ALTERNATING EVERY OTHER DAY WITH 88MCG FOUR TIMES A WEEK
     Route: 048

REACTIONS (1)
  - Blood thyroid stimulating hormone abnormal [Not Recovered/Not Resolved]

NARRATIVE: CASE EVENT DATE: 201703
